FAERS Safety Report 6690365-2 (Version None)
Quarter: 2010Q2

REPORT INFORMATION
  Report Type: 
  Country: None (occurrence: None)
  Receive Date: 20100420
  Receipt Date: 20100420
  Transmission Date: 20101027
  Serious: Yes (Disabling)
  Sender: FDA-Public Use
  Company Number: None

PATIENT
  Age: 53 Year
  Sex: Female
  Weight: 74.8435 kg

DRUGS (2)
  1. CYMBALTA [Suspect]
     Indication: DEPRESSION
     Dosage: 30MG 1 DAILY
     Dates: start: 20091021, end: 20091027
  2. CYMBALTA [Suspect]
     Indication: SLEEP DISORDER
     Dosage: 30MG 1 DAILY
     Dates: start: 20091021, end: 20091027

REACTIONS (19)
  - ABDOMINAL PAIN UPPER [None]
  - ABNORMAL SENSATION IN EYE [None]
  - ANXIETY [None]
  - CONVULSION [None]
  - DIZZINESS [None]
  - EATING DISORDER [None]
  - EYE DISORDER [None]
  - HYPOAESTHESIA [None]
  - INSOMNIA [None]
  - MUSCULOSKELETAL STIFFNESS [None]
  - NECK PAIN [None]
  - NERVOUS SYSTEM DISORDER [None]
  - PAIN IN EXTREMITY [None]
  - PAIN IN JAW [None]
  - PHOTOPHOBIA [None]
  - SPINAL CORD COMPRESSION [None]
  - SWOLLEN TONGUE [None]
  - TREMOR [None]
  - URINARY TRACT INFECTION [None]
